FAERS Safety Report 10593725 (Version 5)
Quarter: 2015Q2

REPORT INFORMATION
  Report Type: Spontaneous
  Country: US (occurrence: US)
  Receive Date: 20141119
  Receipt Date: 20150630
  Transmission Date: 20150821
  Serious: Yes (Hospitalization, Other)
  Sender: FDA-Public Use
  Company Number: US-ELI_LILLY_AND_COMPANY-US201404009180

PATIENT
  Age: 32 Year
  Sex: Male

DRUGS (10)
  1. CELEXA [Concomitant]
     Active Substance: CITALOPRAM HYDROBROMIDE
     Dosage: UNK, QD
     Route: 048
  2. CYMBALTA [Interacting]
     Active Substance: DULOXETINE HYDROCHLORIDE
     Indication: STRESS
  3. ZYPREXA ZYDIS [Suspect]
     Active Substance: OLANZAPINE
     Indication: RELAXATION THERAPY
     Dosage: 10 MG, SINGLE
     Route: 048
  4. ATIVAN [Interacting]
     Active Substance: LORAZEPAM
     Indication: RELAXATION THERAPY
     Dosage: 1 MG, SINGLE
     Route: 048
  5. CYMBALTA [Interacting]
     Active Substance: DULOXETINE HYDROCHLORIDE
     Indication: DEPRESSION
     Dosage: 30 MG, QD
     Route: 048
     Dates: start: 20080724, end: 201101
  6. KLONOPIN [Interacting]
     Active Substance: CLONAZEPAM
     Indication: PRODUCT USED FOR UNKNOWN INDICATION
     Dosage: UNK, QD
     Route: 048
  7. LITHIUM. [Concomitant]
     Active Substance: LITHIUM
     Dosage: 60 MG, QD
     Route: 048
  8. ABILIFY [Concomitant]
     Active Substance: ARIPIPRAZOLE
     Dosage: UNK, QD
     Route: 048
     Dates: start: 20081109
  9. CYMBALTA [Interacting]
     Active Substance: DULOXETINE HYDROCHLORIDE
     Indication: GENERALISED ANXIETY DISORDER
     Dosage: 60 MG, QD
     Route: 048
     Dates: start: 20091112
  10. ADDERALL [Concomitant]
     Active Substance: AMPHETAMINE ASPARTATE\AMPHETAMINE SULFATE\DEXTROAMPHETAMINE SACCHARATE\DEXTROAMPHETAMINE SULFATE
     Dosage: 15 MG, EACH MORNING
     Route: 048
     Dates: start: 20101207

REACTIONS (19)
  - Homicidal ideation [Recovered/Resolved]
  - Drug dose omission [Unknown]
  - Seizure [Unknown]
  - Sedation [Recovered/Resolved]
  - Suicide attempt [Unknown]
  - Paraesthesia [Unknown]
  - Insomnia [Unknown]
  - Feeling abnormal [Unknown]
  - Lethargy [Unknown]
  - Drug withdrawal syndrome [Unknown]
  - Hypersexuality [Recovered/Resolved]
  - Anger [Unknown]
  - Suicidal ideation [Recovered/Resolved]
  - Libido decreased [Unknown]
  - Ejaculation delayed [Unknown]
  - Suicidal ideation [Unknown]
  - Dysarthria [Recovered/Resolved]
  - Drug interaction [Unknown]
  - Off label use [Unknown]

NARRATIVE: CASE EVENT DATE: 20090925
